FAERS Safety Report 8129933-X (Version None)
Quarter: 2012Q1

REPORT INFORMATION
  Report Type: 
  Country: None (occurrence: None)
  Receive Date: 20120210
  Receipt Date: 20120202
  Transmission Date: 20120608
  Serious: Yes (Other)
  Sender: FDA-Public Use
  Company Number: US-PFIZER INC-2012004271

PATIENT
  Sex: Male
  Weight: 159 kg

DRUGS (10)
  1. VANCOMYCIN HCL [Suspect]
     Dosage: UNK
  2. MOTRIN [Suspect]
     Dosage: UNK
     Route: 048
  3. COUMADIN [Suspect]
     Dosage: UNK
  4. AMIODARONE [Concomitant]
     Indication: ATRIAL FIBRILLATION
     Dosage: UNK, DAILY
  5. GLUCOTROL XL [Suspect]
     Indication: DIABETES MELLITUS
     Dosage: 10 MG, 2X/DAY
     Route: 048
  6. AMIODARONE [Concomitant]
     Indication: ARRHYTHMIA
  7. ACETAMINOPHEN [Concomitant]
     Indication: BACK PAIN
     Dosage: UNK
  8. ACETAMINOPHEN [Concomitant]
     Indication: ARTHRITIS
  9. PERCOCET [Concomitant]
     Indication: SCIATICA
     Dosage: UNK
     Route: 048
  10. CODEINE [Concomitant]
     Indication: BACK PAIN
     Dosage: UNK

REACTIONS (7)
  - TOOTH FRACTURE [None]
  - BLOOD GLUCOSE INCREASED [None]
  - WEIGHT INCREASED [None]
  - IMMOBILE [None]
  - RASH [None]
  - SKIN DISCOMFORT [None]
  - DRUG INEFFECTIVE [None]
